FAERS Safety Report 22530071 (Version 1)
Quarter: 2023Q2

REPORT INFORMATION
  Report Type: Spontaneous
  Country: JP (occurrence: JP)
  Receive Date: 20230607
  Receipt Date: 20230607
  Transmission Date: 20230721
  Serious: Yes (Death, Hospitalization)
  Sender: FDA-Public Use
  Company Number: JP-MYLANLABS-2023M1057992

PATIENT
  Age: 71 Year
  Sex: Male

DRUGS (6)
  1. VANCOMYCIN [Suspect]
     Active Substance: VANCOMYCIN
     Indication: Respiratory tract infection
     Dosage: UNK
     Route: 065
  2. VANCOMYCIN [Suspect]
     Active Substance: VANCOMYCIN
     Indication: Haematological infection
  3. VANCOMYCIN [Suspect]
     Active Substance: VANCOMYCIN
     Indication: Klebsiella infection
  4. MEROPENEM [Suspect]
     Active Substance: MEROPENEM
     Indication: Respiratory tract infection
     Dosage: UNK
     Route: 065
  5. MEROPENEM [Suspect]
     Active Substance: MEROPENEM
     Indication: Haematological infection
  6. MEROPENEM [Suspect]
     Active Substance: MEROPENEM
     Indication: Klebsiella infection

REACTIONS (1)
  - Drug ineffective [Fatal]
